FAERS Safety Report 11580825 (Version 9)
Quarter: 2018Q1

REPORT INFORMATION
  Report Type: Report from Study
  Country: CA (occurrence: CA)
  Receive Date: 20151001
  Receipt Date: 20180315
  Transmission Date: 20180508
  Serious: Yes (Other)
  Sender: FDA-Public Use
  Company Number: PHHY2013CA107531

PATIENT
  Age: 48 Year
  Sex: Male

DRUGS (5)
  1. SANDOSTATIN LAR DEPOT [Suspect]
     Active Substance: OCTREOTIDE ACETATE
     Dosage: 30 MG, EVERY 3 WEEKS
     Route: 030
     Dates: start: 20160224
  2. SYNTHROID [Concomitant]
     Active Substance: LEVOTHYROXINE SODIUM
     Indication: PRODUCT USED FOR UNKNOWN INDICATION
     Dosage: UNK UNK, QD
     Route: 065
  3. SANDOSTATIN LAR DEPOT [Suspect]
     Active Substance: OCTREOTIDE ACETATE
     Indication: ACROMEGALY
     Dosage: 20 MG, QMO
     Route: 030
     Dates: start: 20080312
  4. SANDOSTATIN LAR DEPOT [Suspect]
     Active Substance: OCTREOTIDE ACETATE
     Dosage: 20 MG, QMO EVERY 4 WEEKS
     Route: 030
  5. SANDOSTATIN LAR DEPOT [Suspect]
     Active Substance: OCTREOTIDE ACETATE
     Dosage: 30 MG, QMO EVERY 4 WEEKS
     Route: 030

REACTIONS (19)
  - Pruritus [Unknown]
  - Testicular disorder [Unknown]
  - Urticaria [Unknown]
  - Infection [Unknown]
  - Inappropriate schedule of drug administration [Unknown]
  - Blood pressure fluctuation [Unknown]
  - Inflammation [Unknown]
  - Swelling [Unknown]
  - Heart rate decreased [Unknown]
  - Sensation of foreign body [Unknown]
  - Noninfective gingivitis [Unknown]
  - Pain [Unknown]
  - Body temperature decreased [Unknown]
  - Arthropod sting [Unknown]
  - Glucose tolerance impaired [Unknown]
  - Blood pressure increased [Unknown]
  - Blood pressure diastolic increased [Unknown]
  - Needle issue [Unknown]
  - Blood pressure systolic increased [Unknown]

NARRATIVE: CASE EVENT DATE: 20130923
